FAERS Safety Report 7394418-5 (Version None)
Quarter: 2011Q2

REPORT INFORMATION
  Report Type: 
  Country: None (occurrence: None)
  Receive Date: 20110405
  Receipt Date: 20110331
  Transmission Date: 20111010
  Serious: Yes (Hospitalization)
  Sender: FDA-Public Use
  Company Number: DE-ROCHE-767392

PATIENT
  Sex: Female

DRUGS (3)
  1. ROACTEMRA [Suspect]
     Indication: RHEUMATOID ARTHRITIS
     Route: 065
     Dates: start: 20091001
  2. MABTHERA [Concomitant]
     Indication: RHEUMATOID ARTHRITIS
     Dosage: 1 CYCLE
     Dates: end: 20100301
  3. ROACTEMRA [Suspect]
     Route: 065
     Dates: start: 20100301

REACTIONS (5)
  - PULMONARY OEDEMA [None]
  - LIVER FUNCTION TEST ABNORMAL [None]
  - MYOCARDIAL INFARCTION [None]
  - DYSPNOEA [None]
  - RENAL FAILURE ACUTE [None]
